FAERS Safety Report 8505990-3 (Version None)
Quarter: 2012Q3

REPORT INFORMATION
  Report Type: 
  Country: None (occurrence: None)
  Receive Date: 20120712
  Receipt Date: 20120706
  Transmission Date: 20120928
  Serious: Yes (Hospitalization, Disabling)
  Sender: FDA-Public Use
  Company Number: FR-GLAXOSMITHKLINE-B0813096A

PATIENT
  Sex: Male

DRUGS (2)
  1. CLOBETASOL PROPIONATE [Suspect]
     Indication: PSORIASIS
     Route: 050
     Dates: start: 20120228, end: 20120323
  2. CALCIPOTRIENE [Suspect]
     Indication: PSORIASIS
     Route: 050
     Dates: start: 20120228, end: 20120323

REACTIONS (5)
  - HEADACHE [None]
  - BENIGN INTRACRANIAL HYPERTENSION [None]
  - PAPILLOEDEMA [None]
  - VISUAL ACUITY REDUCED [None]
  - MYDRIASIS [None]
